FAERS Safety Report 7547791-9 (Version None)
Quarter: 2011Q2

REPORT INFORMATION
  Report Type: 
  Country: None (occurrence: None)
  Receive Date: 20110615
  Receipt Date: 20110610
  Transmission Date: 20111010
  Serious: Yes (Hospitalization)
  Sender: FDA-Public Use
  Company Number: US-BRISTOL-MYERS SQUIBB COMPANY-15409808

PATIENT
  Age: 74 Year
  Sex: Male

DRUGS (10)
  1. ATIVAN [Concomitant]
     Indication: NAUSEA
     Route: 048
  2. COMPAZINE [Concomitant]
     Indication: NAUSEA
     Route: 048
  3. ATIVAN [Concomitant]
     Indication: ANXIETY
     Route: 048
  4. VITAMIN D2 [Concomitant]
     Dosage: 1 DF = 50000 UNITS
     Route: 048
  5. COUMADIN [Concomitant]
     Route: 048
  6. IPILIMUMAB [Suspect]
     Indication: MALIGNANT MELANOMA
     Route: 042
     Dates: start: 20101105, end: 20101105
  7. SYMBICORT [Concomitant]
     Dosage: 1 DF = 160/4.5 UNITS NOS 2 PUFF
     Route: 055
  8. FLUTICASONE PROPIONATE [Concomitant]
     Dosage: NASAL SPRAY 1 DF = 2 SPRAY
     Route: 045
  9. LISINOPRIL [Concomitant]
     Route: 048
  10. SIMVASTATIN [Concomitant]
     Route: 048

REACTIONS (2)
  - DIARRHOEA [None]
  - DIVERTICULITIS [None]
